FAERS Safety Report 23048043 (Version 1)
Quarter: 2023Q4

REPORT INFORMATION
  Report Type: Spontaneous
  Country: US (occurrence: US)
  Receive Date: 20231010
  Receipt Date: 20231010
  Transmission Date: 20240110
  Serious: No
  Sender: FDA-Public Use
  Company Number: US-SUN PHARMACEUTICAL INDUSTRIES LTD-2022R1-365231

PATIENT
  Age: 64 Year
  Sex: Female

DRUGS (1)
  1. CEQUA [Suspect]
     Active Substance: CYCLOSPORINE
     Indication: Product used for unknown indication
     Dosage: ONE DROP AT NIGHT, AND ONE DROP IN THE MORNING
     Route: 047
     Dates: start: 20221109, end: 20221116

REACTIONS (11)
  - Eye irritation [Unknown]
  - Swelling of eyelid [Unknown]
  - Product quality issue [Unknown]
  - Pain [Unknown]
  - Insomnia [Unknown]
  - Ocular hyperaemia [Unknown]
  - Pruritus [Unknown]
  - Condition aggravated [Unknown]
  - Eye inflammation [Unknown]
  - Drug ineffective [Unknown]
  - Therapy cessation [Unknown]

NARRATIVE: CASE EVENT DATE: 20221112
